FAERS Safety Report 7922867 (Version 3)
Quarter: 2015Q4

REPORT INFORMATION
  Report Type: Spontaneous
  Country: US (occurrence: US)
  Receive Date: 20110429
  Receipt Date: 20151030
  Transmission Date: 20160305
  Serious: No
  Sender: FDA-Public Use
  Company Number: US-ASTRAZENECA-2010SE10011

PATIENT
  Age: 59 Year
  Sex: Female

DRUGS (2)
  1. NEXIUM [Suspect]
     Active Substance: ESOMEPRAZOLE MAGNESIUM
     Route: 048
  2. NEXIUM [Suspect]
     Active Substance: ESOMEPRAZOLE MAGNESIUM
     Route: 048

REACTIONS (11)
  - Feeding disorder [Unknown]
  - Arthritis [Unknown]
  - Fall [Unknown]
  - Anxiety [Unknown]
  - Drug dose omission [Unknown]
  - Osteoporosis [Unknown]
  - Pain [Unknown]
  - Visual impairment [Unknown]
  - Emphysema [Unknown]
  - Irritable bowel syndrome [Unknown]
  - Dysphagia [Unknown]

NARRATIVE: CASE EVENT DATE: 201108
